FAERS Safety Report 5675470-1 (Version None)
Quarter: 2008Q1

REPORT INFORMATION
  Report Type: 
  Country: None (occurrence: None)
  Receive Date: 20080321
  Receipt Date: 20080310
  Transmission Date: 20080703
  Serious: Yes (Life-Threatening, Hospitalization, Disabling)
  Sender: FDA-Public Use
  Company Number: GB-JNJFOC-20080302344

PATIENT
  Age: 61 Year
  Sex: Female
  Weight: 60 kg

DRUGS (7)
  1. REMICADE [Suspect]
     Indication: RHEUMATOID ARTHRITIS
     Route: 042
  2. METHOTREXATE [Suspect]
     Indication: RHEUMATOID ARTHRITIS
  3. ALENDRONIC ACID [Concomitant]
  4. CELECOXIB [Concomitant]
  5. FOLIC ACID [Concomitant]
  6. L-THYROXINE [Concomitant]
  7. TRAMADOL HCL [Concomitant]

REACTIONS (4)
  - CEREBRAL INFARCTION [None]
  - ENCEPHALITIS [None]
  - STAPHYLOCOCCAL INFECTION [None]
  - STREPTOCOCCAL INFECTION [None]
